FAERS Safety Report 15398191 (Version 1)
Quarter: 2018Q3

REPORT INFORMATION
  Report Type: Spontaneous
  Country: US (occurrence: US)
  Receive Date: 20180918
  Receipt Date: 20180918
  Transmission Date: 20181010
  Serious: Yes (Hospitalization)
  Sender: FDA-Public Use
  Company Number: US-TEVA-2018-US-954533

PATIENT
  Age: 69 Year
  Sex: Female

DRUGS (2)
  1. DOPAMINE [Suspect]
     Active Substance: DOPAMINE\DOPAMINE HYDROCHLORIDE
     Indication: BLOOD PRESSURE MANAGEMENT
     Route: 042
  2. NOREPINEPHRINE. [Suspect]
     Active Substance: NOREPINEPHRINE
     Indication: BLOOD PRESSURE MANAGEMENT
     Route: 042

REACTIONS (1)
  - Posterior reversible encephalopathy syndrome [Recovered/Resolved]
